FAERS Safety Report 4341441-0 (Version None)
Quarter: 2004Q2

REPORT INFORMATION
  Report Type: 
  Country: None (occurrence: None)
  Receive Date: 20040415
  Receipt Date: 20040407
  Transmission Date: 20050107
  Serious: Yes (Death)
  Sender: FDA-Public Use
  Company Number: 2004208008SE

PATIENT
  Age: 72 Year
  Sex: Female

DRUGS (5)
  1. FRAGMIN [Suspect]
     Dosage: SUBCUTANEOUS
     Route: 058
     Dates: start: 20040114, end: 20040119
  2. TROMBYL (ACETYLSALICYLIC ACID) [Suspect]
     Dosage: 75 MG, DAILY, ORAL
     Route: 048
     Dates: end: 20040119
  3. XALATAN [Concomitant]
  4. FUROSEMIDE [Concomitant]
  5. ATENOLOL [Concomitant]

REACTIONS (6)
  - BLOOD CREATINE PHOSPHOKINASE MB INCREASED [None]
  - CEREBRAL HAEMORRHAGE [None]
  - FATIGUE [None]
  - GENERAL PHYSICAL HEALTH DETERIORATION [None]
  - LOSS OF CONSCIOUSNESS [None]
  - TROPONIN T INCREASED [None]
